FAERS Safety Report 20926754 (Version 1)
Quarter: 2022Q2

REPORT INFORMATION
  Report Type: Spontaneous
  Country: US (occurrence: None)
  Receive Date: 20220607
  Receipt Date: 20220607
  Transmission Date: 20220720
  Serious: Yes (Hospitalization)
  Sender: FDA-Public Use
  Company Number: None

PATIENT
  Age: 31 Year
  Sex: Male
  Weight: 94 kg

DRUGS (8)
  1. AXICABTAGENE CILOLEUCEL [Suspect]
     Active Substance: AXICABTAGENE CILOLEUCEL
     Indication: Lymphoma
     Dosage: FREQUENCY : ONCE;?
     Route: 042
  2. acyclovir (Zovirax) [Concomitant]
     Dates: end: 20220607
  3. KEPPRA [Concomitant]
     Active Substance: LEVETIRACETAM
     Dates: end: 20220531
  4. DECADRON [Concomitant]
     Active Substance: DEXAMETHASONE
     Dates: end: 20220217
  5. posaconazole (Noxafil) [Concomitant]
     Dates: end: 20220210
  6. methylPREDNISolone (SOLU-Medrol) [Concomitant]
     Dates: end: 20220206
  7. ZOSYN [Concomitant]
     Active Substance: PIPERACILLIN SODIUM\TAZOBACTAM SODIUM
     Dates: end: 20220210
  8. tocilizumab (Actemra [Concomitant]
     Dates: end: 20220205

REACTIONS (2)
  - Immune effector cell-associated neurotoxicity syndrome [None]
  - Cytokine release syndrome [None]

NARRATIVE: CASE EVENT DATE: 20220113
